FAERS Safety Report 24443958 (Version 2)
Quarter: 2024Q4

REPORT INFORMATION
  Report Type: Report from Study
  Country: ZA (occurrence: ZA)
  Receive Date: 20241016
  Receipt Date: 20241017
  Transmission Date: 20250114
  Serious: No
  Sender: ROCHE
  Company Number: ZA-ROCHE-2643838

PATIENT
  Sex: Female

DRUGS (3)
  1. MABTHERA [Suspect]
     Active Substance: RITUXIMAB
     Indication: Rheumatoid arthritis
     Dosage: INFUSED ON DAY 1 AND DAY 15? FREQUENCY TEXT:INFUSED ON DAY 1 AND DAY 15
     Route: 042
     Dates: start: 20200120
  2. MABTHERA [Suspect]
     Active Substance: RITUXIMAB
     Dosage: FREQUENCY TEXT:DAY 0 AND DAY 14
     Route: 042
  3. RITUXIMAB [Suspect]
     Active Substance: RITUXIMAB
     Indication: Rheumatoid arthritis
     Dosage: REPEATEREPEATED 6 MONTHLYD 6 MONTHLY
     Route: 041

REACTIONS (11)
  - Alanine aminotransferase increased [Unknown]
  - Aspartate aminotransferase increased [Unknown]
  - C-reactive protein increased [Unknown]
  - Blood creatinine increased [Unknown]
  - White blood cell count increased [Unknown]
  - Alanine aminotransferase increased [Unknown]
  - Aspartate aminotransferase increased [Unknown]
  - C-reactive protein increased [Unknown]
  - Rheumatoid arthritis [Unknown]
  - Haemoglobin decreased [Unknown]
  - Condition aggravated [Unknown]
